FAERS Safety Report 26188087 (Version 1)
Quarter: 2025Q4

REPORT INFORMATION
  Report Type: Spontaneous
  Country: US (occurrence: US)
  Receive Date: 20251222
  Receipt Date: 20251222
  Transmission Date: 20260118
  Serious: Yes (Hospitalization, Other)
  Sender: MYLAN
  Company Number: US-MYLANLABS-2025M1108516

PATIENT
  Age: 53 Year
  Sex: Female
  Weight: 72 kg

DRUGS (4)
  1. PANTOPRAZOLE SODIUM [Suspect]
     Active Substance: PANTOPRAZOLE SODIUM
     Indication: Gastritis
     Dosage: 40 MILLIGRAM, PM (ONCE A DAY AT NIGHT)
  2. PANTOPRAZOLE SODIUM [Suspect]
     Active Substance: PANTOPRAZOLE SODIUM
     Dosage: 40 MILLIGRAM, PM (ONCE A DAY AT NIGHT)
     Route: 065
  3. PANTOPRAZOLE SODIUM [Suspect]
     Active Substance: PANTOPRAZOLE SODIUM
     Dosage: 40 MILLIGRAM, PM (ONCE A DAY AT NIGHT)
     Route: 065
  4. PANTOPRAZOLE SODIUM [Suspect]
     Active Substance: PANTOPRAZOLE SODIUM
     Dosage: 40 MILLIGRAM, PM (ONCE A DAY AT NIGHT)

REACTIONS (9)
  - Adverse event [Unknown]
  - Loss of consciousness [Unknown]
  - Gait disturbance [Unknown]
  - Hyperthermia [Unknown]
  - Limb discomfort [Unknown]
  - Balance disorder [Unknown]
  - Somnolence [Unknown]
  - Dizziness [Unknown]
  - Product use in unapproved indication [Unknown]
